FAERS Safety Report 18191808 (Version 1)
Quarter: 2020Q3

REPORT INFORMATION
  Report Type: Spontaneous
  Country: US (occurrence: US)
  Receive Date: 20200824
  Receipt Date: 20200824
  Transmission Date: 20201103
  Serious: No
  Sender: FDA-Public Use
  Company Number: None

PATIENT
  Age: 77 Year
  Sex: Female
  Weight: 41.85 kg

DRUGS (5)
  1. ZOFRAN [Concomitant]
     Active Substance: ONDANSETRON HYDROCHLORIDE
  2. NINLARO [Suspect]
     Active Substance: IXAZOMIB CITRATE
     Indication: PLASMA CELL MYELOMA
     Dosage: ?          OTHER FREQUENCY:1 Q WEEK Q 28 DAYS;?
     Route: 048
     Dates: start: 20200610
  3. LOVASTATIN. [Concomitant]
     Active Substance: LOVASTATIN
  4. ACYCLOVIR. [Concomitant]
     Active Substance: ACYCLOVIR
  5. DEXAMETHASONE. [Concomitant]
     Active Substance: DEXAMETHASONE

REACTIONS (4)
  - Nausea [None]
  - Dizziness [None]
  - Constipation [None]
  - Decreased appetite [None]

NARRATIVE: CASE EVENT DATE: 20200824
